FAERS Safety Report 8034478-1 (Version None)
Quarter: 2012Q1

REPORT INFORMATION
  Report Type: 
  Country: None (occurrence: None)
  Receive Date: 20120110
  Receipt Date: 20120103
  Transmission Date: 20120608
  Serious: No
  Sender: FDA-Public Use
  Company Number: FR-B.I. PHARMACEUTICALS,INC./RIDGEFIELD-2011-FF-01189FF

PATIENT
  Sex: Female

DRUGS (2)
  1. LMWH [Concomitant]
  2. PRADAXA [Suspect]
     Indication: KNEE ARTHROPLASTY
     Route: 048

REACTIONS (2)
  - NAUSEA [None]
  - PHLEBITIS [None]
